FAERS Safety Report 14917846 (Version 1)
Quarter: 2018Q2

REPORT INFORMATION
  Report Type: Spontaneous
  Country: BR (occurrence: BR)
  Receive Date: 20180521
  Receipt Date: 20180521
  Transmission Date: 20180711
  Serious: Yes (Other)
  Sender: FDA-Public Use
  Company Number: BR-BAXTER-2018BAX014508

PATIENT
  Age: 66 Year
  Sex: Male

DRUGS (3)
  1. DEXAMETHASONE. [Suspect]
     Active Substance: DEXAMETHASONE
     Indication: PLASMA CELL MYELOMA
     Dosage: THE PATIENT RECEIVED THREE CYCLES BEFORE THE THERAPY WAS INTERRUPTED
     Route: 065
  2. GENUXAL [Suspect]
     Active Substance: CYCLOPHOSPHAMIDE
     Indication: PLASMA CELL MYELOMA
     Dosage: THE PATIENT RECEIVED THREE CYCLES BEFORE THE THERAPY WAS INTERRUPTED
     Route: 065
  3. BORTEZOMIB [Suspect]
     Active Substance: BORTEZOMIB
     Indication: PLASMA CELL MYELOMA
     Dosage: THE PATIENT RECEIVED THREE CYCLES BEFORE THE THERAPY WAS INTERRUPTED
     Route: 065

REACTIONS (1)
  - Myopathy toxic [Unknown]
